FAERS Safety Report 5344312-6 (Version None)
Quarter: 2007Q2

REPORT INFORMATION
  Report Type: 
  Country: None (occurrence: None)
  Receive Date: 20070604
  Receipt Date: 20070529
  Transmission Date: 20071010
  Serious: Yes (Hospitalization, Other)
  Sender: FDA-Public Use
  Company Number: FR-ASTRAZENECA-2007CG00812

PATIENT
  Age: 75 Year
  Sex: Male
  Weight: 85 kg

DRUGS (8)
  1. ZOLADEX [Suspect]
     Indication: PROSTATE CANCER
     Route: 058
     Dates: start: 20070301
  2. CASODEX [Concomitant]
     Indication: PROSTATE CANCER
     Route: 048
     Dates: start: 20070301
  3. ZESTORETIC [Concomitant]
     Dosage: TABLET 20 MG+12.5 MG
     Route: 048
  4. OMEPRAZOLE [Concomitant]
     Route: 048
  5. PREVISCAN [Concomitant]
  6. TRAMADOL HCL [Concomitant]
  7. TRANSIPEG [Concomitant]
  8. SOTALOL HCL [Concomitant]

REACTIONS (4)
  - MUSCULAR WEAKNESS [None]
  - PAIN [None]
  - PAIN OF SKIN [None]
  - SKIN SWELLING [None]
